FAERS Safety Report 5446230-1 (Version None)
Quarter: 2007Q3

REPORT INFORMATION
  Report Type: 
  Country: None (occurrence: None)
  Receive Date: 20070907
  Receipt Date: 20070830
  Transmission Date: 20080115
  Serious: Yes (Hospitalization)
  Sender: FDA-Public Use
  Company Number: JP-ABBOTT-07P-087-0415743-00

PATIENT
  Age: 54 Year
  Sex: Female

DRUGS (10)
  1. CLARITHROMYCIN [Suspect]
     Indication: PNEUMONIA ASPIRATION
     Route: 048
     Dates: start: 20060327, end: 20060404
  2. LOXOPROFEN SODIUM HYDRATE [Concomitant]
     Indication: ARTHRALGIA
     Route: 048
  3. ATORVASTATIN CALCIUM HYDRATE [Concomitant]
     Indication: HYPERLIPIDAEMIA
     Route: 048
  4. OMEPRAZOLE [Concomitant]
     Indication: GASTRIC ULCER
     Route: 048
  5. ASPIRIN [Concomitant]
     Indication: ANTIPHOSPHOLIPID SYNDROME
     Route: 048
  6. WARFARIN POTASSIUM [Concomitant]
     Indication: ANTIPHOSPHOLIPID SYNDROME
     Route: 048
  7. PAROXETINE HYDROCHLORIDE HYDRATE [Concomitant]
     Indication: MULTIPLE SYSTEM ATROPHY
     Route: 048
  8. TRIAZOLAM [Concomitant]
     Indication: INSOMNIA
     Route: 048
  9. TALTIRELIN HYDRATE [Concomitant]
     Indication: MULTIPLE SYSTEM ATROPHY
     Route: 048
  10. CEFOZOPRAN HYDROCHLORIDE [Concomitant]
     Indication: DRUG USE FOR UNKNOWN INDICATION
     Route: 042
     Dates: start: 20060320

REACTIONS (4)
  - BLOOD CREATINE PHOSPHOKINASE INCREASED [None]
  - LIVER DISORDER [None]
  - PYREXIA [None]
  - URINE ANALYSIS ABNORMAL [None]
